FAERS Safety Report 8217522-8 (Version None)
Quarter: 2012Q1

REPORT INFORMATION
  Report Type: 
  Country: None (occurrence: None)
  Receive Date: 20120314
  Receipt Date: 20120303
  Transmission Date: 20120608
  Serious: Yes (Other)
  Sender: FDA-Public Use
  Company Number: ABR_00387_2012

PATIENT
  Sex: Female

DRUGS (1)
  1. ERYTHROMYCIN [Suspect]
     Indication: PRODUCT USED FOR UNKNOWN INDICATION
     Dates: start: 19870101, end: 19870101

REACTIONS (4)
  - PHARYNGEAL OEDEMA [None]
  - RESPIRATORY TRACT OEDEMA [None]
  - SWOLLEN TONGUE [None]
  - DYSPNOEA [None]
